FAERS Safety Report 7340435-0 (Version None)
Quarter: 2011Q1

REPORT INFORMATION
  Report Type: 
  Country: None (occurrence: None)
  Receive Date: 20110309
  Receipt Date: 20110301
  Transmission Date: 20110831
  Serious: Yes (Hospitalization, Other)
  Sender: FDA-Public Use
  Company Number: US-JNJFOC-20100704034

PATIENT
  Sex: Male

DRUGS (5)
  1. PREDNISONE [Suspect]
     Indication: ANTIINFLAMMATORY THERAPY
     Route: 065
  2. LEVAQUIN [Suspect]
     Indication: SINUSITIS
     Route: 048
  3. METHYLPREDNISOLONE [Suspect]
     Indication: PRODUCT USED FOR UNKNOWN INDICATION
     Route: 065
  4. ENALAPRIL MALEATE [Concomitant]
     Indication: HYPERTENSION
     Route: 065
  5. CRESTOR [Concomitant]
     Indication: BLOOD CHOLESTEROL DECREASED
     Route: 065

REACTIONS (5)
  - ROTATOR CUFF SYNDROME [None]
  - TENDONITIS [None]
  - TENDON RUPTURE [None]
  - EPICONDYLITIS [None]
  - JOINT INJURY [None]
